FAERS Safety Report 16868458 (Version 2)
Quarter: 2019Q4

REPORT INFORMATION
  Report Type: Spontaneous
  Country: US (occurrence: US)
  Receive Date: 20190930
  Receipt Date: 20191127
  Transmission Date: 20200122
  Serious: No
  Sender: FDA-Public Use
  Company Number: US-PFIZER INC-2019418040

PATIENT
  Age: 62 Year
  Sex: Female
  Weight: 77.98 kg

DRUGS (9)
  1. CURCUMIN [Concomitant]
     Active Substance: CURCUMIN
     Dosage: UNK %, UNK
  2. LISINOPRIL. [Concomitant]
     Active Substance: LISINOPRIL
     Dosage: 2.5 MG, UNK
  3. ATENOLOL. [Concomitant]
     Active Substance: ATENOLOL
     Dosage: 25 MG, UNK
  4. METFORMIN HCL [Concomitant]
     Active Substance: METFORMIN HYDROCHLORIDE
     Dosage: 500 MG, UNK
  5. IBRANCE [Suspect]
     Active Substance: PALBOCICLIB
     Indication: OESTROGEN RECEPTOR POSITIVE BREAST CANCER
     Dosage: 125 MG, 1X/DAY (1 DAILY FOR 21 DAYS)
     Route: 048
     Dates: start: 20190824
  6. XELODA [Concomitant]
     Active Substance: CAPECITABINE
     Dosage: UNK
  7. ATORVASTATIN CALCIUM. [Concomitant]
     Active Substance: ATORVASTATIN CALCIUM
     Dosage: 20 MG, UNK
  8. IBRANCE [Suspect]
     Active Substance: PALBOCICLIB
     Indication: NEOPLASM MALIGNANT
     Dosage: 20 MG, 1X/DAY
     Dates: end: 201909
  9. LETROZOLE. [Concomitant]
     Active Substance: LETROZOLE
     Dosage: 2.5 MG, UNK

REACTIONS (6)
  - Gait inability [Recovered/Resolved]
  - Off label use [Unknown]
  - Pain in extremity [Recovered/Resolved]
  - Product use issue [Unknown]
  - Neoplasm progression [Recovered/Resolved]
  - Lip blister [Recovered/Resolved]
